FAERS Safety Report 21764203 (Version 1)
Quarter: 2022Q4

REPORT INFORMATION
  Report Type: Report from Study
  Country: MX (occurrence: MX)
  Receive Date: 20221222
  Receipt Date: 20221222
  Transmission Date: 20230113
  Serious: Yes (Other)
  Sender: FDA-Public Use
  Company Number: MX-002147023-NVSC2022MX293376

PATIENT
  Sex: Female
  Weight: 64 kg

DRUGS (6)
  1. TRILEPTAL [Suspect]
     Active Substance: OXCARBAZEPINE
     Indication: Epilepsy
     Dosage: 300 MG
     Route: 048
     Dates: start: 2006
  2. TRILEPTAL [Suspect]
     Active Substance: OXCARBAZEPINE
     Dosage: 900 MG, BID (ONE TABLET OF 600 MG AND ONE TABLET OF 300 MG)
     Route: 048
  3. VALPROIC ACID [Suspect]
     Active Substance: VALPROIC ACID
     Indication: Epilepsy
     Dosage: 1 DOSAGE FORM, BID (300 MG)
     Route: 048
     Dates: start: 201311
  4. VALPROIC ACID [Suspect]
     Active Substance: VALPROIC ACID
     Dosage: 0.5 DOSAGE FORM, BID
     Route: 048
     Dates: end: 201311
  5. LEVETIRACETAM [Concomitant]
     Active Substance: LEVETIRACETAM
     Indication: Epilepsy
     Dosage: 0.5 DOSAGE FORM, Q12H (500 MG)
     Route: 065
     Dates: start: 2013, end: 2016
  6. LEVETIRACETAM [Concomitant]
     Active Substance: LEVETIRACETAM
     Dosage: 1.5 DOSAGE FORM, Q12H (1 G)
     Route: 065
     Dates: start: 2016

REACTIONS (3)
  - Seizure [Recovering/Resolving]
  - Seizure [Unknown]
  - Off label use [Unknown]

NARRATIVE: CASE EVENT DATE: 20130101
